FAERS Safety Report 14578563 (Version 4)
Quarter: 2018Q2

REPORT INFORMATION
  Report Type: Report from Study
  Country: US (occurrence: US)
  Receive Date: 20180227
  Receipt Date: 20180522
  Transmission Date: 20180711
  Serious: Yes (Hospitalization, Other)
  Sender: FDA-Public Use
  Company Number: US-ALEXION PHARMACEUTICALS INC.-A201802195

PATIENT
  Sex: Female

DRUGS (2)
  1. SOLIRIS [Suspect]
     Active Substance: ECULIZUMAB
     Dosage: 900 MG, Q2W
     Route: 065
  2. SOLIRIS [Suspect]
     Active Substance: ECULIZUMAB
     Indication: PAROXYSMAL NOCTURNAL HAEMOGLOBINURIA
     Dosage: UNK
     Route: 065

REACTIONS (14)
  - Haemoglobin decreased [Recovered/Resolved]
  - Pain in extremity [Not Recovered/Not Resolved]
  - Viral infection [Recovered/Resolved]
  - Platelet count decreased [Recovered/Resolved]
  - Fatigue [Not Recovered/Not Resolved]
  - Weight increased [Not Recovered/Not Resolved]
  - Headache [Not Recovered/Not Resolved]
  - Red blood cell count decreased [Recovered/Resolved]
  - Dyspnoea exertional [Not Recovered/Not Resolved]
  - Limb discomfort [Unknown]
  - Body temperature decreased [Not Recovered/Not Resolved]
  - Bone marrow disorder [Recovered/Resolved]
  - White blood cell count decreased [Recovered/Resolved]
  - Blood lactate dehydrogenase increased [Unknown]
